FAERS Safety Report 19700943 (Version 2)
Quarter: 2021Q4

REPORT INFORMATION
  Report Type: Report from Study
  Country: US (occurrence: US)
  Receive Date: 20210813
  Receipt Date: 20211105
  Transmission Date: 20220303
  Serious: Yes (Other)
  Sender: FDA-Public Use
  Company Number: US-IPSEN BIOPHARMACEUTICALS, INC.-2021-19453

PATIENT
  Age: 36 Year
  Sex: Male

DRUGS (1)
  1. SOMATULINE DEPOT [Suspect]
     Active Substance: LANREOTIDE ACETATE
     Indication: Neuroendocrine tumour
     Dosage: 120 MG EVERY 4 WEEKS
     Route: 058
     Dates: start: 202102

REACTIONS (3)
  - Disease progression [Not Recovered/Not Resolved]
  - Diarrhoea [Unknown]
  - Irritability [Unknown]

NARRATIVE: CASE EVENT DATE: 20210101
